FAERS Safety Report 6665776-1 (Version None)
Quarter: 2010Q2

REPORT INFORMATION
  Report Type: 
  Country: None (occurrence: None)
  Receive Date: 20100402
  Receipt Date: 20100323
  Transmission Date: 20101027
  Serious: Yes (Hospitalization)
  Sender: FDA-Public Use
  Company Number: US-RB-001555-10

PATIENT
  Age: 49 Year
  Sex: Female

DRUGS (2)
  1. SUBOXONE [Suspect]
     Indication: DRUG DEPENDENCE
     Route: 060
     Dates: start: 20050101, end: 20100101
  2. SUBOXONE [Suspect]
     Route: 060
     Dates: start: 20100101

REACTIONS (3)
  - ABDOMINAL NEOPLASM [None]
  - SLUGGISHNESS [None]
  - ULCER [None]
